FAERS Safety Report 8939757 (Version 2)
Quarter: 2012Q4

REPORT INFORMATION
  Report Type: 
  Country: JP (occurrence: JP)
  Receive Date: 20121130
  Receipt Date: 20121212
  Transmission Date: 20130627
  Serious: Yes (Other)
  Sender: FDA-Public Use
  Company Number: JP-ABBOTT-12P-087-1012302-00

PATIENT
  Age: 72 Year
  Sex: Male

DRUGS (3)
  1. CLARITHROMYCIN [Suspect]
     Indication: ATYPICAL MYCOBACTERIAL INFECTION
  2. SILDENAFIL CITRATE [Interacting]
     Indication: PRODUCT USED FOR UNKNOWN INDICATION
  3. RIFAMPICIN [Suspect]
     Indication: ATYPICAL MYCOBACTERIAL INFECTION

REACTIONS (2)
  - Pulmonary hypertension [Unknown]
  - Drug interaction [Unknown]
